FAERS Safety Report 9626253 (Version 2)
Quarter: 2013Q4

REPORT INFORMATION
  Report Type: Spontaneous
  Country: US (occurrence: None)
  Receive Date: 20131007
  Receipt Date: 20131017
  Transmission Date: 20140711
  Serious: Yes (Hospitalization)
  Sender: FDA-Public Use
  Company Number: 2013038255

PATIENT
  Age: 13 Year
  Sex: Male
  Weight: 35.4 kg

DRUGS (19)
  1. CARIMUNE [Suspect]
     Indication: HYPOGAMMAGLOBULINAEMIA
     Dosage: 11.9 GM, 36 GM; PARTIAL INFUSION OF ABOUT 11.9 GM; MAX INFUSION RATE 88.5 M;L/HR INTRAVENOUS (NOT OTHERWISE SPECIFIFED)
     Route: 042
     Dates: start: 20130926, end: 20130926
  2. CARIMUNE [Suspect]
     Indication: BLOOD IMMUNOGLOBULIN G DECREASED
     Dosage: 11.9 GM, 36 GM; PARTIAL INFUSION OF ABOUT 11.9 GM; MAX INFUSION RATE 88.5 M;L/HR INTRAVENOUS (NOT OTHERWISE SPECIFIFED)
     Route: 042
     Dates: start: 20130926, end: 20130926
  3. FUROSEMIDE (FUROSEMIDE) [Concomitant]
  4. MIRALAX (MACROGOL) [Concomitant]
  5. ADVAIR (SERETIDE /01420901/) [Concomitant]
  6. SPIRONOLACTONE (SPIRONOLACTONE) [Concomitant]
  7. CALCIUM CARBONATE (CALCIUM CARBONATE) (CALCIUM CARBONATE) [Concomitant]
  8. VITAMIN D3 (COLECALCIFEROL) [Concomitant]
  9. BUDESONIDE (BUDESONIDE) [Concomitant]
  10. EANALAPRIL (ENALAPRIAL) [Concomitant]
  11. PREVACID (LANSOPRAZOLE) [Concomitant]
  12. ASPIRIN (ACETYLSALICYLIC ACID) [Concomitant]
  13. SINGULAIR (MONTELUKAST) 10MG [Concomitant]
  14. LEVOTHYROXINE (LEVOTHYROXINE) [Concomitant]
  15. OXCARBAZEPINE (OXCARBAZEPINE) [Concomitant]
  16. DIPHENHYDRAMINE (DIPHENHYDRAMINE) [Concomitant]
  17. ACETAMINOPHEN (PARAETAMOL) [Concomitant]
  18. PREDNISOLONE (PREDNISOLONE) [Concomitant]
  19. ALBUMIN 25% (ALBUMIN HUMAN) [Concomitant]

REACTIONS (9)
  - Meningitis aseptic [None]
  - Nausea [None]
  - Infusion related reaction [None]
  - Back pain [None]
  - Vomiting [None]
  - Dyspnoea [None]
  - Headache [None]
  - Dizziness [None]
  - Hallucination [None]
